FAERS Safety Report 5452657-4 (Version None)
Quarter: 2007Q3

REPORT INFORMATION
  Report Type: 
  Country: None (occurrence: None)
  Receive Date: 20070914
  Receipt Date: 20070904
  Transmission Date: 20080115
  Serious: Yes (Disabling)
  Sender: FDA-Public Use
  Company Number: ES-GENENTECH-247180

PATIENT
  Age: 53 Year
  Sex: Female

DRUGS (2)
  1. NUTROPIN AQ [Suspect]
     Indication: GROWTH HORMONE DEFICIENCY
     Dosage: 0.4 MG, QD
     Route: 058
     Dates: start: 20061226
  2. TRISEQUENS NOS [Concomitant]
     Indication: HORMONE REPLACEMENT THERAPY
     Dates: start: 20070401

REACTIONS (1)
  - HAEMATOMA [None]
